FAERS Safety Report 7641470-5 (Version None)
Quarter: 2011Q3

REPORT INFORMATION
  Report Type: 
  Country: None (occurrence: None)
  Receive Date: 20110727
  Receipt Date: 20110727
  Transmission Date: 20111222
  Serious: Yes (Hospitalization)
  Sender: FDA-Public Use
  Company Number: None

PATIENT
  Age: 55 Year
  Sex: Male
  Weight: 182.5 kg

DRUGS (7)
  1. PRILOSEC [Concomitant]
  2. EVEROLIMUS [Suspect]
     Indication: RECTAL CANCER METASTATIC
     Dosage: 10MG
  3. FLAGYL [Concomitant]
  4. FLOMAX [Concomitant]
  5. RITALIN [Concomitant]
  6. AV-951 [Suspect]
     Indication: RECTAL CANCER METASTATIC
     Dosage: 1MG
  7. LOVENOX [Concomitant]

REACTIONS (4)
  - RECTAL HAEMORRHAGE [None]
  - VASCULAR PSEUDOANEURYSM [None]
  - FISTULA [None]
  - EMBOLISM ARTERIAL [None]
